FAERS Safety Report 7818893-4 (Version None)
Quarter: 2011Q4

REPORT INFORMATION
  Report Type: 
  Country: None (occurrence: None)
  Receive Date: 20111017
  Receipt Date: 20111017
  Transmission Date: 20120403
  Serious: Yes (Hospitalization)
  Sender: FDA-Public Use
  Company Number: None

PATIENT
  Sex: Male
  Weight: 111 kg

DRUGS (5)
  1. RITUXIMAB (MOAB C2B8 ANTI CD20, CHIMERIC) [Suspect]
     Dosage: 930 MG
  2. PREDNISONE [Suspect]
     Dosage: 500 MG
  3. CYCLOPHOSPHAMIDE [Suspect]
     Dosage: 1860 MG
  4. VINCRISTINE SULFATE [Suspect]
     Dosage: 2 MG
  5. DOXORUBICIN HCL [Suspect]
     Dosage: 124 MG

REACTIONS (8)
  - ANAEMIA [None]
  - PNEUMONIA [None]
  - LUNG INFECTION [None]
  - BACTERIAL TEST POSITIVE [None]
  - PYREXIA [None]
  - THROMBOCYTOPENIA [None]
  - NEUTROPENIA [None]
  - DIARRHOEA [None]
